FAERS Safety Report 4612802-7 (Version None)
Quarter: 2005Q1

REPORT INFORMATION
  Report Type: 
  Country: None (occurrence: None)
  Receive Date: 20050317
  Receipt Date: 20050317
  Transmission Date: 20050727
  Serious: Yes (Life-Threatening)
  Sender: FDA-Public Use
  Company Number: None

PATIENT
  Age: 47 Year
  Sex: Female

DRUGS (2)
  1. PEG-INTRON [Suspect]
     Dates: start: 20011001, end: 20020201
  2. REBETOL [Suspect]
     Dates: start: 20011001, end: 20020201

REACTIONS (1)
  - DISABILITY [None]
